FAERS Safety Report 10574066 (Version 2)
Quarter: 2014Q4

REPORT INFORMATION
  Report Type: Report from Study
  Country: CA (occurrence: CA)
  Receive Date: 20141110
  Receipt Date: 20141123
  Transmission Date: 20150529
  Serious: Yes (Other)
  Sender: FDA-Public Use
  Company Number: CA-BRISTOL-MYERS SQUIBB COMPANY-21546742

PATIENT
  Age: 72 Year
  Sex: Male

DRUGS (9)
  1. METHOTREXATE [Concomitant]
     Active Substance: METHOTREXATE
  2. CORTISONE [Concomitant]
     Active Substance: CORTISONE\HYDROCORTISONE
  3. LIPITOR [Concomitant]
     Active Substance: ATORVASTATIN CALCIUM
  4. METFORMIN [Concomitant]
     Active Substance: METFORMIN HYDROCHLORIDE
  5. ACTONEL [Concomitant]
     Active Substance: RISEDRONATE SODIUM
  6. CALCITE [Concomitant]
     Active Substance: CALCIUM CARBONATE
  7. ASAPHEN [Concomitant]
     Active Substance: ASPIRIN
  8. ORENCIA [Suspect]
     Active Substance: ABATACEPT
     Indication: RHEUMATOID ARTHRITIS
     Route: 042
     Dates: start: 20080819
  9. APO-FOLIC [Concomitant]

REACTIONS (1)
  - Intestinal obstruction [Recovering/Resolving]
